FAERS Safety Report 7351338-X (Version None)
Quarter: 2011Q1

REPORT INFORMATION
  Report Type: 
  Country: None (occurrence: None)
  Receive Date: 20110314
  Receipt Date: 20110228
  Transmission Date: 20110831
  Serious: Yes (Other)
  Sender: FDA-Public Use
  Company Number: PHHY2011ZA16379

PATIENT
  Sex: Female

DRUGS (2)
  1. ACLASTA [Suspect]
     Dosage: 5 MG,
     Route: 042
     Dates: start: 20101001
  2. MENOCAL [Concomitant]

REACTIONS (6)
  - DIABETES MELLITUS [None]
  - DIZZINESS [None]
  - PYREXIA [None]
  - PAIN [None]
  - INFLUENZA LIKE ILLNESS [None]
  - BACK PAIN [None]
